FAERS Safety Report 5144608-7 (Version None)
Quarter: 2006Q4

REPORT INFORMATION
  Report Type: 
  Country: None (occurrence: None)
  Receive Date: 20061106
  Receipt Date: 20061101
  Transmission Date: 20070319
  Serious: Yes (Life-Threatening, Hospitalization, Disabling)
  Sender: FDA-Public Use
  Company Number: US-MERCK-0611USA01037

PATIENT
  Sex: Male

DRUGS (1)
  1. VYTORIN [Suspect]
     Route: 048
     Dates: start: 20061001, end: 20061001

REACTIONS (3)
  - ADVERSE EVENT [None]
  - FALL [None]
  - SPINAL FRACTURE [None]
